FAERS Safety Report 12804410 (Version 1)
Quarter: 2016Q4

REPORT INFORMATION
  Report Type: Spontaneous
  Country: US (occurrence: US)
  Receive Date: 20161003
  Receipt Date: 20161003
  Transmission Date: 20170207
  Serious: Yes (Other)
  Sender: FDA-Public Use
  Company Number: US-BAUSCH-BL-2016-023977

PATIENT
  Age: 51 Year

DRUGS (1)
  1. ALDARA [Suspect]
     Active Substance: IMIQUIMOD
     Indication: BASAL CELL CARCINOMA
     Route: 065
     Dates: start: 20000128, end: 2000

REACTIONS (14)
  - Syncope [Unknown]
  - Diarrhoea [Not Recovered/Not Resolved]
  - Epistaxis [Unknown]
  - Cerebral congestion [Unknown]
  - Dysphonia [Unknown]
  - Vision blurred [Unknown]
  - Balance disorder [Not Recovered/Not Resolved]
  - Influenza like illness [Unknown]
  - Fatigue [Not Recovered/Not Resolved]
  - Disorientation [Unknown]
  - Nausea [Unknown]
  - Bloody discharge [Unknown]
  - Dysgeusia [Unknown]
  - Weight decreased [Unknown]
